FAERS Safety Report 18510029 (Version 2)
Quarter: 2020Q4

REPORT INFORMATION
  Report Type: Report from Study
  Country: JP (occurrence: JP)
  Receive Date: 20201117
  Receipt Date: 20201224
  Transmission Date: 20210114
  Serious: Yes (Other)
  Sender: FDA-Public Use
  Company Number: PHJP2019JP012578

PATIENT
  Age: 6 Year
  Sex: Female
  Weight: 24.2 kg

DRUGS (10)
  1. ILARIS [Suspect]
     Active Substance: CANAKINUMAB
     Dosage: 103 MG
     Route: 058
     Dates: start: 20190906
  2. ILARIS [Suspect]
     Active Substance: CANAKINUMAB
     Indication: STILL^S DISEASE
     Dosage: 96 MG
     Route: 058
     Dates: start: 20190422
  3. ILARIS [Suspect]
     Active Substance: CANAKINUMAB
     Dosage: 103 MG
     Route: 058
     Dates: start: 20191004
  4. ILARIS [Suspect]
     Active Substance: CANAKINUMAB
     Dosage: 103 MG
     Route: 058
     Dates: start: 20191101
  5. PREDNISOLONE. [Concomitant]
     Active Substance: PREDNISOLONE
     Indication: STILL^S DISEASE
     Dosage: 50 MG
     Route: 048
     Dates: start: 20180908, end: 20191101
  6. ILARIS [Suspect]
     Active Substance: CANAKINUMAB
     Dosage: 96 MG
     Route: 058
     Dates: start: 20190520
  7. ILARIS [Suspect]
     Active Substance: CANAKINUMAB
     Dosage: 96 MG
     Route: 058
     Dates: start: 20190618
  8. BAKTAR [Suspect]
     Active Substance: SULFAMETHOXAZOLE\TRIMETHOPRIM
     Indication: INFECTION PROPHYLAXIS
     Dosage: 2 G
     Route: 048
     Dates: start: 20190416, end: 20190823
  9. ILARIS [Suspect]
     Active Substance: CANAKINUMAB
     Dosage: 96 MG
     Route: 058
     Dates: start: 20190712
  10. ILARIS [Suspect]
     Active Substance: CANAKINUMAB
     Dosage: 96 MG
     Route: 058
     Dates: start: 20190809

REACTIONS (3)
  - Lymphocyte count decreased [Unknown]
  - Liver function test increased [Recovered/Resolved]
  - Hepatic function abnormal [Recovered/Resolved]

NARRATIVE: CASE EVENT DATE: 20190823
